FAERS Safety Report 20112468 (Version 2)
Quarter: 2021Q4

REPORT INFORMATION
  Report Type: Spontaneous
  Country: US (occurrence: US)
  Receive Date: 20211125
  Receipt Date: 20211214
  Transmission Date: 20220303
  Serious: Yes (Hospitalization, Other)
  Sender: FDA-Public Use
  Company Number: US-PFIZER INC-202101568786

PATIENT
  Age: 69 Year
  Sex: Male

DRUGS (3)
  1. LINEZOLID [Suspect]
     Active Substance: LINEZOLID
     Indication: Staphylococcal bacteraemia
     Dosage: UNK (TAKING LONG-TERM)
     Route: 048
  2. LINEZOLID [Suspect]
     Active Substance: LINEZOLID
     Indication: Osteomyelitis
     Dosage: UNK
     Dates: start: 201907, end: 20190809
  3. LINEZOLID [Suspect]
     Active Substance: LINEZOLID
     Dosage: UNK (30-DAY SUPPLY)
     Dates: start: 201912

REACTIONS (15)
  - Product dispensing error [Unknown]
  - Incorrect product administration duration [Unknown]
  - Asthenia [Recovered/Resolved]
  - Weight decreased [Recovered/Resolved]
  - Decreased appetite [Recovered/Resolved]
  - Diarrhoea [Recovered/Resolved]
  - Pleural effusion [Recovered/Resolved]
  - Colitis [Recovered/Resolved]
  - Bicytopenia [Recovered/Resolved]
  - Hypogammaglobulinaemia [Recovered/Resolved]
  - Hypolipidaemia [Recovered/Resolved]
  - Alopecia [Unknown]
  - Haemoglobin decreased [Recovered/Resolved]
  - Platelet count decreased [Recovered/Resolved]
  - Reticulocytopenia [Recovered/Resolved]

NARRATIVE: CASE EVENT DATE: 20191201
